FAERS Safety Report 19702231 (Version 1)
Quarter: 2021Q3

REPORT INFORMATION
  Report Type: Spontaneous
  Country: US (occurrence: US)
  Receive Date: 20210814
  Receipt Date: 20210814
  Transmission Date: 20211014
  Serious: Yes (Hospitalization, Other)
  Sender: FDA-Public Use
  Company Number: US-TEVA-2021-US-1941447

PATIENT
  Sex: Female

DRUGS (1)
  1. NEFAZODONE [Suspect]
     Active Substance: NEFAZODONE
     Route: 065

REACTIONS (9)
  - Suicide attempt [Unknown]
  - Adverse event [Unknown]
  - Suicidal ideation [Unknown]
  - Hypertension [Unknown]
  - Depression [Unknown]
  - Withdrawal syndrome [Unknown]
  - Insomnia [Unknown]
  - Impaired work ability [Unknown]
  - Anxiety [Unknown]
